FAERS Safety Report 9089572 (Version 1)
Quarter: 2013Q1

REPORT INFORMATION
  Report Type: Report from Study
  Country: US (occurrence: US)
  Receive Date: 20130130
  Receipt Date: 20130130
  Transmission Date: 20140127
  Serious: No
  Sender: FDA-Public Use
  Company Number: US-ABBOTT-12P-163-0988718-00

PATIENT
  Age: 46 Year
  Sex: Female

DRUGS (3)
  1. HUMIRA [Suspect]
     Indication: CROHN^S DISEASE
     Dates: end: 20120801
  2. HUMIRA [Suspect]
     Dates: start: 20120815
  3. SYNTHROID [Concomitant]
     Indication: THYROID DISORDER
     Dosage: DAILY

REACTIONS (5)
  - Drug dose omission [Unknown]
  - Gastric disorder [Unknown]
  - Loss of consciousness [Unknown]
  - Urinary tract infection [Recovering/Resolving]
  - Pain [Recovering/Resolving]
